FAERS Safety Report 7724545 (Version 2)
Quarter: 2013Q3

REPORT INFORMATION
  Report Type: Spontaneous
  Country: US (occurrence: US)
  Receive Date: 20101221
  Receipt Date: 20130722
  Transmission Date: 20140515
  Serious: Yes (Hospitalization, Other)
  Sender: FDA-Public Use
  Company Number: US-ROCHE-727164

PATIENT
  Age: 29 Year
  Sex: Female

DRUGS (2)
  1. ACCUTANE [Suspect]
     Indication: ACNE
     Route: 065
  2. ACCUTANE [Suspect]
     Route: 065
     Dates: start: 199708, end: 199711

REACTIONS (9)
  - Crohn^s disease [Recovering/Resolving]
  - Gastrointestinal injury [Unknown]
  - Abscess intestinal [Unknown]
  - Intestinal fistula infection [Unknown]
  - Crohn^s disease [Unknown]
  - Depression [Recovering/Resolving]
  - Peptic ulcer [Unknown]
  - Osteoarthritis [Unknown]
  - Haemorrhoids [Unknown]
